FAERS Safety Report 6671422-3 (Version None)
Quarter: 2010Q2

REPORT INFORMATION
  Report Type: 
  Country: None (occurrence: None)
  Receive Date: 20100406
  Receipt Date: 20100406
  Transmission Date: 20101027
  Serious: Yes (Other)
  Sender: FDA-Public Use
  Company Number: None

PATIENT
  Age: 31 Year
  Sex: Female
  Weight: 68.0396 kg

DRUGS (2)
  1. SYNTHROID [Suspect]
     Indication: GOITRE
     Dosage: 125 MCG 1 DAILY
     Dates: start: 20080101, end: 20090401
  2. SYNTHROID [Suspect]
     Indication: HYPOTHYROIDISM
     Dosage: 125 MCG 1 DAILY
     Dates: start: 20080101, end: 20090401

REACTIONS (8)
  - BLOOD CHOLESTEROL INCREASED [None]
  - DEPRESSION [None]
  - FATIGUE [None]
  - HAIR TEXTURE ABNORMAL [None]
  - IRRITABILITY [None]
  - MENORRHAGIA [None]
  - NO THERAPEUTIC RESPONSE [None]
  - WEIGHT INCREASED [None]
